FAERS Safety Report 5660878-0 (Version None)
Quarter: 2008Q1

REPORT INFORMATION
  Report Type: 
  Country: None (occurrence: None)
  Receive Date: 20080311
  Receipt Date: 20080310
  Transmission Date: 20080703
  Serious: No
  Sender: FDA-Public Use
  Company Number: US-BAXTER-2008BH002017

PATIENT
  Age: 66 Year
  Sex: Female
  Weight: 77 kg

DRUGS (23)
  1. HEPARIN SODIUM [Suspect]
     Indication: PROPHYLAXIS
     Route: 033
     Dates: start: 20070101, end: 20080130
  2. AMBIEN [Concomitant]
     Indication: INSOMNIA
     Route: 048
  3. COZAAR [Concomitant]
     Indication: CARDIAC DISORDER
     Route: 048
  4. CYTOMEL [Concomitant]
     Indication: THYROID DISORDER
     Route: 048
  5. LEVOTHYROXINE SODIUM [Concomitant]
     Indication: THYROID DISORDER
     Route: 048
  6. STOOL SOFTENER [Concomitant]
     Indication: CONSTIPATION
     Dosage: DOSE UNIT:UNKNOWN
     Route: 048
  7. IRON [Concomitant]
     Indication: MINERAL SUPPLEMENTATION
     Route: 048
  8. FEXOFENADINE [Concomitant]
     Indication: HYPERSENSITIVITY
     Route: 048
  9. ALLERGY [Concomitant]
     Indication: HYPERSENSITIVITY
     Dosage: DOSE UNIT:UNKNOWN
     Route: 045
  10. FUROSEMIDE [Concomitant]
     Indication: DIURETIC THERAPY
     Route: 048
  11. HYDROCODONE BITARTRATE [Concomitant]
     Indication: PAIN
     Route: 048
  12. ISOSORBIDE MONONITRATE [Concomitant]
     Indication: CARDIAC DISORDER
     Route: 048
  13. LORAZEPAM [Concomitant]
     Indication: NERVOUSNESS
     Route: 048
  14. LOVAZA [Concomitant]
     Indication: BLOOD CHOLESTEROL
     Route: 048
  15. METOPROLOL SUCCINATE [Concomitant]
     Indication: CARDIAC DISORDER
     Route: 048
  16. NEXIUM                                  /UNK/ [Concomitant]
     Indication: STOMACH DISCOMFORT
     Route: 048
  17. NORTRIPTYLINE HCL [Concomitant]
     Indication: ANTIDEPRESSANT THERAPY
     Route: 048
  18. OLUX [Concomitant]
     Indication: ALOPECIA
     Route: 048
  19. POTASSIUM CHLORIDE [Concomitant]
     Indication: MINERAL SUPPLEMENTATION
     Route: 048
  20. RENAGEL [Concomitant]
     Indication: BLOOD PHOSPHORUS
     Route: 048
  21. RENALTABS [Concomitant]
     Indication: VITAMIN SUPPLEMENTATION
     Dosage: DOSE UNIT:UNKNOWN
     Route: 048
  22. REQUIP [Concomitant]
     Indication: RESTLESS LEGS SYNDROME
     Route: 048
  23. TERAZONE [Concomitant]
     Indication: DEPRESSION
     Route: 048

REACTIONS (7)
  - ABDOMINAL PAIN [None]
  - HEADACHE [None]
  - MUSCLE SPASMS [None]
  - NAUSEA [None]
  - PHARYNGOLARYNGEAL PAIN [None]
  - STOMACH DISCOMFORT [None]
  - VOMITING [None]
